FAERS Safety Report 15858367 (Version 4)
Quarter: 2019Q4

REPORT INFORMATION
  Report Type: Spontaneous
  Country: US (occurrence: US)
  Receive Date: 20190123
  Receipt Date: 20191007
  Transmission Date: 20200122
  Serious: Yes (Other)
  Sender: FDA-Public Use
  Company Number: US-PFIZER INC-2019029673

PATIENT
  Age: 68 Year
  Sex: Female
  Weight: 68.4 kg

DRUGS (2)
  1. LYRICA [Suspect]
     Active Substance: PREGABALIN
     Dosage: 150 MG, 2X/DAY, (150MG CAPSULE TAKEN BY MOUTH TWICE DAILY: MORNING AND EVENING)
     Route: 048
  2. LYRICA [Suspect]
     Active Substance: PREGABALIN
     Indication: FIBROMYALGIA
     Dosage: UNK

REACTIONS (3)
  - Feeling of despair [Unknown]
  - Pain [Unknown]
  - Mobility decreased [Unknown]
